FAERS Safety Report 18139617 (Version 3)
Quarter: 2020Q4

REPORT INFORMATION
  Report Type: Spontaneous
  Country: US (occurrence: US)
  Receive Date: 20200812
  Receipt Date: 20201006
  Transmission Date: 20210113
  Serious: No
  Sender: FDA-Public Use
  Company Number: US-PFIZER INC-2020306764

PATIENT
  Age: 79 Year
  Sex: Female
  Weight: 54.43 kg

DRUGS (1)
  1. LATANOPROST. [Suspect]
     Active Substance: LATANOPROST
     Indication: OCULAR HYPERTENSION
     Dosage: 2 DROP, 1X/DAY(1 DROP TO BOTH EYES IN THE EVENING)
     Dates: start: 20200809, end: 20200813

REACTIONS (5)
  - Vision blurred [Recovering/Resolving]
  - Eye irritation [Recovering/Resolving]
  - Paraesthesia [Recovering/Resolving]
  - Iris hyperpigmentation [Unknown]
  - Eye colour change [Unknown]

NARRATIVE: CASE EVENT DATE: 202008
